FAERS Safety Report 26174725 (Version 1)
Quarter: 2025Q4

REPORT INFORMATION
  Report Type: Spontaneous
  Country: US (occurrence: US)
  Receive Date: 20251218
  Receipt Date: 20251218
  Transmission Date: 20260117
  Serious: Yes (Hospitalization)
  Sender: MACLEODS
  Company Number: US-MACLEODS PHARMA-MAC2025057103

PATIENT

DRUGS (4)
  1. DULOXETINE [Suspect]
     Active Substance: DULOXETINE
     Indication: Major depression
     Route: 065
  2. DULOXETINE [Suspect]
     Active Substance: DULOXETINE
     Route: 065
  3. DULOXETINE [Suspect]
     Active Substance: DULOXETINE
     Route: 065
  4. ALBUTEROL [Concomitant]
     Active Substance: ALBUTEROL
     Indication: Antitussive therapy
     Dosage: INHALER
     Route: 065

REACTIONS (1)
  - Atypical Stevens-Johnson syndrome [Recovered/Resolved]
